FAERS Safety Report 6393029-8 (Version None)
Quarter: 2009Q4

REPORT INFORMATION
  Report Type: 
  Country: None (occurrence: None)
  Receive Date: 20091008
  Receipt Date: 20080205
  Transmission Date: 20100525
  Serious: Yes (Other)
  Sender: FDA-Public Use
  Company Number: US-ASTRAZENECA-2006UW26434

PATIENT
  Age: 15058 Day
  Sex: Male
  Weight: 110 kg

DRUGS (9)
  1. SEROQUEL [Suspect]
     Indication: ANXIETY
     Route: 048
     Dates: start: 20030101, end: 20050401
  2. SEROQUEL [Suspect]
     Indication: DEPRESSION
     Route: 048
     Dates: start: 20030101, end: 20050401
  3. SEROQUEL [Suspect]
     Indication: SCHIZOPHRENIA
     Route: 048
     Dates: start: 20030101, end: 20050401
  4. FOSINOPRIL NA [Concomitant]
     Indication: HYPERTENSION
     Dosage: 20-80 MG
     Route: 048
     Dates: start: 20030805
  5. LANOXIN [Concomitant]
     Indication: CARDIAC DISORDER
     Route: 048
     Dates: start: 20031110
  6. GEMFIBROZIL [Concomitant]
     Indication: BLOOD TRIGLYCERIDES INCREASED
     Route: 048
     Dates: start: 20030805
  7. GEMFIBROZIL [Concomitant]
     Indication: BLOOD CHOLESTEROL INCREASED
     Route: 048
     Dates: start: 20030805
  8. ASPIRIN [Concomitant]
     Indication: CEREBROVASCULAR ACCIDENT
     Route: 048
     Dates: start: 20030805
  9. TRAMADOL HCL [Concomitant]
     Indication: PAIN
     Route: 048
     Dates: start: 20031202

REACTIONS (6)
  - DIABETES MELLITUS [None]
  - DIABETES MELLITUS INADEQUATE CONTROL [None]
  - DIABETIC RETINOPATHY [None]
  - HYPERGLYCAEMIA [None]
  - RETINOPATHY [None]
  - TYPE 2 DIABETES MELLITUS [None]
